FAERS Safety Report 23038327 (Version 2)
Quarter: 2024Q1

REPORT INFORMATION
  Report Type: Spontaneous
  Country: DE (occurrence: DE)
  Receive Date: 20231006
  Receipt Date: 20240109
  Transmission Date: 20240410
  Serious: Yes (Other)
  Sender: FDA-Public Use
  Company Number: DE-DCGMA-23201883

PATIENT
  Sex: Female

DRUGS (9)
  1. LEVOFLOXACIN [Suspect]
     Active Substance: LEVOFLOXACIN
     Indication: Product used for unknown indication
     Dosage: UNK
     Route: 065
  2. CIPROFLOXACIN [Suspect]
     Active Substance: CIPROFLOXACIN
     Indication: Product used for unknown indication
     Dosage: 500 MILLIGRAM
     Route: 048
  3. HUMAN HEPATITIS B VIRUS IMMUNE GLOBULIN [Suspect]
     Active Substance: HUMAN HEPATITIS B VIRUS IMMUNE GLOBULIN
     Indication: Product used for unknown indication
     Dosage: UNK
     Route: 065
  4. MEASLES-MUMPS VIRUS VACCINE, LIVE [Suspect]
     Active Substance: MEASLES-MUMPS VIRUS VACCINE, LIVE
     Indication: Product used for unknown indication
     Dosage: UNK
     Route: 065
  5. REVAXIS [Suspect]
     Active Substance: DIPHTHERIA AND TETANUS TOXOIDS AND POLIOVIRUS VACCINE ANTIGENS
     Indication: Immunisation
     Dosage: UNK
     Route: 065
  6. REPEVAX [Suspect]
     Active Substance: DIPHTHERIA AND TETANUS TOXOIDS AND ACELLULAR PERTUSSIS ADSORBED AND INACTIVATED POLIOVIRUS VACCINE
     Indication: Immunisation
     Dosage: UNK
     Route: 065
  7. DIPHTHERIA AND TETANUS TOXOIDS AND ACELLULAR PERTUSSIS ADSORBED AND IN [Suspect]
     Active Substance: DIPHTHERIA AND TETANUS TOXOIDS AND ACELLULAR PERTUSSIS ADSORBED AND INACTIVATED POLIOVIRUS VACCINE
     Indication: Product used for unknown indication
     Dosage: UNK
     Route: 065
  8. TETANUS TOXOID, REDUCED DIPHTHERIA TOXOID AND ACELLULAR PERTUSSIS VACC [Suspect]
     Active Substance: TETANUS TOXOID, REDUCED DIPHTHERIA TOXOID AND ACELLULAR PERTUSSIS VACCINE ADSORBED, TDAP
     Indication: Product used for unknown indication
     Dosage: UNK
     Route: 065
  9. BCG VACCINE [Suspect]
     Active Substance: BCG VACCINE
     Indication: Immunisation
     Dosage: UNK
     Route: 065

REACTIONS (2)
  - Vaccination complication [Unknown]
  - Concomitant disease aggravated [Unknown]
